FAERS Safety Report 13839837 (Version 1)
Quarter: 2017Q3

REPORT INFORMATION
  Report Type: Spontaneous
  Country: US (occurrence: US)
  Receive Date: 20170805
  Receipt Date: 20170805
  Transmission Date: 20171127
  Serious: No
  Sender: FDA-Public Use
  Company Number: None

PATIENT
  Age: 48 Year
  Sex: Female

DRUGS (10)
  1. AZATHIOPRINE. [Concomitant]
     Active Substance: AZATHIOPRINE
  2. DAPTOMYCIN. [Suspect]
     Active Substance: DAPTOMYCIN
     Indication: BACTERAEMIA
     Route: 042
     Dates: start: 20170117, end: 20170125
  3. DAPTOMYCIN. [Suspect]
     Active Substance: DAPTOMYCIN
     Indication: ENTEROCOCCAL INFECTION
     Route: 042
     Dates: start: 20170117, end: 20170125
  4. FAMOTIDINE. [Concomitant]
     Active Substance: FAMOTIDINE
  5. INSULIN ASPART [Concomitant]
     Active Substance: INSULIN ASPART
  6. INSULIN GLARGINE [Concomitant]
     Active Substance: INSULIN GLARGINE
  7. TACROLIMUS. [Concomitant]
     Active Substance: TACROLIMUS
  8. METHYLPREDNISOLONE. [Concomitant]
     Active Substance: METHYLPREDNISOLONE
  9. ACYCLOVIR. [Concomitant]
     Active Substance: ACYCLOVIR
  10. PIPERACILLIN/TAZOBACTAM [Concomitant]
     Active Substance: PIPERACILLIN SODIUM\TAZOBACTAM SODIUM

REACTIONS (4)
  - Hepatic artery thrombosis [None]
  - Cerebrovascular accident [None]
  - Pulseless electrical activity [None]
  - Hepatic cirrhosis [None]

NARRATIVE: CASE EVENT DATE: 20170125
